FAERS Safety Report 24831460 (Version 1)
Quarter: 2025Q1

REPORT INFORMATION
  Report Type: Spontaneous
  Country: US (occurrence: US)
  Receive Date: 20250110
  Receipt Date: 20250110
  Transmission Date: 20250408
  Serious: No
  Sender: SANOFI AVENTIS
  Company Number: US-SA-2025SA007951

PATIENT
  Age: 61 Year
  Sex: Female
  Weight: 78.68 kg

DRUGS (1)
  1. KEVZARA [Suspect]
     Active Substance: SARILUMAB
     Indication: Polymyalgia rheumatica
     Dosage: 200 MG, QOW
     Route: 058
     Dates: start: 20241021

REACTIONS (3)
  - Swelling face [Unknown]
  - Lip swelling [Unknown]
  - Swelling [Unknown]

NARRATIVE: CASE EVENT DATE: 20241201
